FAERS Safety Report 6991760-4 (Version None)
Quarter: 2010Q3

REPORT INFORMATION
  Report Type: 
  Country: None (occurrence: None)
  Receive Date: 20100916
  Receipt Date: 20100916
  Transmission Date: 20110219
  Serious: Yes (Other)
  Sender: FDA-Public Use
  Company Number: None

PATIENT
  Age: 36 Day
  Sex: Female
  Weight: 108.8633 kg

DRUGS (1)
  1. ADVIL [Suspect]
     Indication: MIGRAINE
     Dosage: 600 MG ONCE UNK
     Dates: start: 20100907, end: 20100907

REACTIONS (5)
  - ABDOMINAL PAIN UPPER [None]
  - CONTUSION [None]
  - DIARRHOEA [None]
  - PAIN [None]
  - PRURITUS [None]
